FAERS Safety Report 6817829-2 (Version None)
Quarter: 2010Q3

REPORT INFORMATION
  Report Type: 
  Country: None (occurrence: None)
  Receive Date: 20100706
  Receipt Date: 20100630
  Transmission Date: 20110219
  Serious: Yes (Disabling)
  Sender: FDA-Public Use
  Company Number: US-MERCK-1007USA00053

PATIENT
  Age: 59 Year
  Sex: Female

DRUGS (6)
  1. JANUVIA [Suspect]
     Indication: TYPE 2 DIABETES MELLITUS
     Route: 048
     Dates: start: 20090101, end: 20100501
  2. JANUVIA [Suspect]
     Route: 048
     Dates: start: 20100501, end: 20100611
  3. LOTREL [Concomitant]
     Route: 065
  4. LEVOTHYROXINE SODIUM [Concomitant]
     Route: 065
  5. ASPIRIN [Concomitant]
     Route: 065
  6. NITROGLYCERIN [Concomitant]
     Route: 065

REACTIONS (6)
  - CHEST PAIN [None]
  - HEART RATE IRREGULAR [None]
  - HYPERHIDROSIS [None]
  - NAUSEA [None]
  - PAIN IN EXTREMITY [None]
  - WRONG TECHNIQUE IN DRUG USAGE PROCESS [None]
